FAERS Safety Report 5601223-6 (Version None)
Quarter: 2008Q1

REPORT INFORMATION
  Report Type: 
  Country: None (occurrence: None)
  Receive Date: 20080124
  Receipt Date: 20080124
  Transmission Date: 20080703
  Serious: Yes (Other)
  Sender: FDA-Public Use
  Company Number: A0705136A

PATIENT
  Age: 62 Year
  Sex: Female

DRUGS (9)
  1. ALLI [Suspect]
     Indication: WEIGHT LOSS DIET
     Route: 048
     Dates: start: 20070101, end: 20080123
  2. CENTRUM SILVER [Concomitant]
  3. VITAMIN B-12 [Concomitant]
  4. VITAMIN B COMPLEX CAP [Concomitant]
  5. CALCIUM GLUCONATE [Concomitant]
  6. FOLIC ACID [Concomitant]
  7. ASPIRIN [Concomitant]
  8. ASCORBIC ACID [Concomitant]
  9. FOSAMAX [Concomitant]

REACTIONS (2)
  - BLOOD IRON DECREASED [None]
  - HAEMORRHAGE [None]
